FAERS Safety Report 7428556-5 (Version None)
Quarter: 2011Q2

REPORT INFORMATION
  Report Type: 
  Country: None (occurrence: None)
  Receive Date: 20110421
  Receipt Date: 20091120
  Transmission Date: 20111010
  Serious: Yes (Other)
  Sender: FDA-Public Use
  Company Number: US-BAYER-200940922NA

PATIENT
  Age: 46 Year
  Sex: Male
  Weight: 118.82 kg

DRUGS (18)
  1. PROTAMINE SULFATE [Concomitant]
  2. PLAVIX [Concomitant]
     Dosage: 75 MG, QD
     Route: 048
     Dates: start: 20031201
  3. SYNTHROID [Concomitant]
     Dosage: 0.175 MG, QD
     Route: 048
     Dates: start: 20030901
  4. LANOXIN [Concomitant]
     Dosage: 0.25 MG, QD
     Route: 048
     Dates: start: 20031001
  5. ASPIRIN [Concomitant]
     Route: 048
  6. TRASYLOL [Suspect]
     Indication: CORONARY ARTERY BYPASS
     Dosage: TEST DOSE: AMICAR
     Dates: start: 20040308
  7. DOPAMINE HCL [Concomitant]
  8. LOPID [Concomitant]
     Dosage: 600 MG, QD
     Route: 048
     Dates: start: 20040306
  9. HEPARIN [Concomitant]
     Dosage: UNK
     Route: 042
     Dates: start: 20060306
  10. COZAAR [Concomitant]
     Dosage: 100 MG, QD
     Route: 048
  11. AMICAR [Concomitant]
  12. LIPITOR [Concomitant]
     Dosage: 40 MG, QD
     Route: 048
  13. LOTENSIN [Concomitant]
     Dosage: 20 MG, QD
     Route: 048
     Dates: start: 19980101
  14. INTEGRILIN [Concomitant]
     Dosage: UNK UNK, PRN
     Route: 042
     Dates: start: 20031219
  15. FUROSEMIDE [Concomitant]
     Dosage: 40 MG, QD
     Route: 048
     Dates: start: 20030901
  16. NITROGLYCERIN [Concomitant]
     Dosage: 0.2 MG, QD
     Route: 062
     Dates: start: 20031201
  17. BETAPACE [Concomitant]
     Dosage: 80 MG, QD
     Route: 048
     Dates: start: 20040306
  18. DIPHENHYDRAMINE HYDROCHLORIDE [Concomitant]
     Dosage: 25 MG, QD
     Route: 048
     Dates: start: 20040306

REACTIONS (11)
  - DEPRESSION [None]
  - RENAL FAILURE [None]
  - ANHEDONIA [None]
  - UNEVALUABLE EVENT [None]
  - FEAR [None]
  - PAIN [None]
  - DISABILITY [None]
  - MULTI-ORGAN FAILURE [None]
  - RENAL INJURY [None]
  - INJURY [None]
  - ANXIETY [None]
